FAERS Safety Report 10612185 (Version 4)
Quarter: 2015Q1

REPORT INFORMATION
  Report Type: Report from Study
  Country: CA (occurrence: CA)
  Receive Date: 20141127
  Receipt Date: 20150108
  Transmission Date: 20150720
  Serious: Yes (Life-Threatening, Hospitalization, Other)
  Sender: FDA-Public Use
  Company Number: CA-ROCHE-1496945

PATIENT
  Age: 15 Year
  Sex: Female

DRUGS (10)
  1. SOLU-MEDROL [Concomitant]
     Active Substance: METHYLPREDNISOLONE SODIUM SUCCINATE
     Indication: PREMEDICATION
     Route: 042
     Dates: start: 20140620
  2. RITUXAN [Suspect]
     Active Substance: RITUXIMAB
     Indication: VASCULITIS
     Route: 042
     Dates: start: 20140620
  3. LISINOPRIL. [Suspect]
     Active Substance: LISINOPRIL
     Indication: PRODUCT USED FOR UNKNOWN INDICATION
     Route: 065
  4. TYLENOL [Concomitant]
     Active Substance: ACETAMINOPHEN
     Indication: PREMEDICATION
     Route: 048
     Dates: start: 20140620
  5. HYDRALAZINE [Concomitant]
     Active Substance: HYDRALAZINE HYDROCHLORIDE
  6. BENADRYL [Concomitant]
     Active Substance: DIPHENHYDRAMINE HYDROCHLORIDE
     Indication: PREMEDICATION
     Route: 048
     Dates: start: 20140620
  7. PREDNISONE. [Concomitant]
     Active Substance: PREDNISONE
  8. FERROUS SULFATE [Concomitant]
     Active Substance: FERROUS SULFATE\FERROUS SULFATE, DRIED
  9. RITUXAN [Suspect]
     Active Substance: RITUXIMAB
     Dosage: X 1 DOSE?LAST DOSE OF RITUXAN 17/DEC/2014
     Route: 042
     Dates: start: 20140702
  10. LASIX [Concomitant]
     Active Substance: FUROSEMIDE

REACTIONS (7)
  - Infusion related reaction [Unknown]
  - Cardiac disorder [Unknown]
  - Off label use [Unknown]
  - Drug ineffective [Unknown]
  - Renal failure [Not Recovered/Not Resolved]
  - Neutropenic sepsis [Unknown]
  - Haematemesis [Unknown]

NARRATIVE: CASE EVENT DATE: 20141031
